FAERS Safety Report 8192892-8 (Version None)
Quarter: 2012Q1

REPORT INFORMATION
  Report Type: 
  Country: None (occurrence: None)
  Receive Date: 20120308
  Receipt Date: 20120229
  Transmission Date: 20120608
  Serious: Yes (Other)
  Sender: FDA-Public Use
  Company Number: CA-JNJFOC-20120301268

PATIENT
  Sex: Male

DRUGS (5)
  1. ORNIDAZOLE [Concomitant]
     Dosage: TRADE NAME: AVRA
     Route: 065
  2. PRILOSEC [Concomitant]
     Route: 065
  3. PERCOCET [Concomitant]
     Route: 065
  4. REMICADE [Suspect]
     Indication: RHEUMATOID ARTHRITIS
     Route: 042
     Dates: start: 20100916
  5. REMICADE [Suspect]
     Route: 042
     Dates: start: 20120229

REACTIONS (6)
  - FALL [None]
  - LACERATION [None]
  - DYSPNOEA [None]
  - VOMITING [None]
  - FLUSHING [None]
  - INFUSION RELATED REACTION [None]
